FAERS Safety Report 7536757-0 (Version None)
Quarter: 2011Q2

REPORT INFORMATION
  Report Type: 
  Country: None (occurrence: None)
  Receive Date: 20110609
  Receipt Date: 20110606
  Transmission Date: 20111010
  Serious: Yes (Other)
  Sender: FDA-Public Use
  Company Number: D0071638A

PATIENT
  Age: 26 Year
  Sex: Female
  Weight: 130 kg

DRUGS (1)
  1. SUMATRIPTAN SUCCINATE [Suspect]
     Indication: MIGRAINE
     Dosage: 100MG SINGLE DOSE
     Route: 048

REACTIONS (2)
  - CIRCULATORY COLLAPSE [None]
  - FEELING DRUNK [None]
